FAERS Safety Report 9293562 (Version 2)
Quarter: 2013Q2

REPORT INFORMATION
  Report Type: Spontaneous
  Country: BR (occurrence: BR)
  Receive Date: 20130516
  Receipt Date: 20130520
  Transmission Date: 20140414
  Serious: Yes (Hospitalization)
  Sender: FDA-Public Use
  Company Number: BR-GLAXOSMITHKLINE-B0892086A

PATIENT
  Age: 70 Year
  Sex: Male
  Weight: 74 kg

DRUGS (6)
  1. RYTMONORM [Suspect]
     Indication: ARRHYTHMIA
     Dosage: 150MG TWICE PER DAY
     Route: 048
     Dates: start: 201209, end: 20130430
  2. DIOVAN [Concomitant]
     Indication: BLOOD PRESSURE
     Route: 048
     Dates: start: 201112
  3. HYDROCHLOROTHIAZIDE [Concomitant]
     Indication: MICTURITION DISORDER
     Dosage: 25MG PER DAY
     Route: 048
     Dates: start: 201112
  4. ASPIRINA [Concomitant]
     Indication: PROPHYLAXIS
     Dosage: 100MG PER DAY
     Route: 048
     Dates: start: 20130430
  5. BENERVA [Concomitant]
     Indication: VITAMIN SUPPLEMENTATION
     Dosage: 1TAB TWICE PER DAY
     Route: 048
     Dates: start: 2012
  6. DIPYRONE [Concomitant]
     Indication: PAIN
     Dosage: 1TAB AS REQUIRED
     Route: 048
     Dates: start: 20130328

REACTIONS (3)
  - Cardiac operation [Recovering/Resolving]
  - Heart rate decreased [Recovered/Resolved]
  - Muscular weakness [Unknown]
